FAERS Safety Report 19888701 (Version 1)
Quarter: 2021Q3

REPORT INFORMATION
  Report Type: Spontaneous
  Country: US (occurrence: US)
  Receive Date: 20210928
  Receipt Date: 20210928
  Transmission Date: 20211014
  Serious: No
  Sender: FDA-Public Use
  Company Number: US-009507513-2109USA004847

PATIENT
  Sex: Male

DRUGS (1)
  1. INTRON A [Suspect]
     Active Substance: INTERFERON ALFA-2B
     Indication: SYSTEMIC IMMUNE ACTIVATION
     Dosage: LOW DOSAGE EVERY OTHER DAY

REACTIONS (2)
  - Product prescribing issue [Unknown]
  - No adverse event [Unknown]
